FAERS Safety Report 13583436 (Version 2)
Quarter: 2017Q3

REPORT INFORMATION
  Report Type: Spontaneous
  Country: JP (occurrence: JP)
  Receive Date: 20170526
  Receipt Date: 20170703
  Transmission Date: 20171127
  Serious: Yes (Other)
  Sender: FDA-Public Use
  Company Number: JP-UCBSA-2016043372

PATIENT
  Age: 6 Year
  Sex: Female

DRUGS (4)
  1. E KEPPRA [Suspect]
     Active Substance: LEVETIRACETAM
     Dosage: 150 MG DAILY
     Route: 048
     Dates: start: 20150512, end: 20150706
  2. E KEPPRA [Suspect]
     Active Substance: LEVETIRACETAM
     Dosage: 200 MG DAILY
     Route: 048
     Dates: start: 20150707, end: 20160314
  3. E KEPPRA [Suspect]
     Active Substance: LEVETIRACETAM
     Indication: FRONTAL LOBE EPILEPSY
     Dosage: 90MG DAILY
     Route: 048
     Dates: start: 20150420, end: 20150427
  4. E KEPPRA [Suspect]
     Active Substance: LEVETIRACETAM
     Indication: BENIGN ROLANDIC EPILEPSY
     Dosage: 120 MG DAILY
     Route: 048
     Dates: start: 20150428, end: 20150511

REACTIONS (1)
  - Change in seizure presentation [Recovering/Resolving]

NARRATIVE: CASE EVENT DATE: 20151110
